FAERS Safety Report 5917159-7 (Version None)
Quarter: 2008Q4

REPORT INFORMATION
  Report Type: 
  Country: None (occurrence: None)
  Receive Date: 20081010
  Receipt Date: 20081010
  Transmission Date: 20090506
  Serious: Yes (Other)
  Sender: FDA-Public Use
  Company Number: None

PATIENT
  Age: 29 Year
  Sex: Female
  Weight: 47.6277 kg

DRUGS (1)
  1. LAMOTRIGINE [Suspect]
     Indication: AICARDI'S SYNDROME
     Dosage: 1 AM; 1 1/2 PM 047
     Dates: start: 20080818, end: 20080902

REACTIONS (3)
  - CONDITION AGGRAVATED [None]
  - CONVULSION [None]
  - THERAPEUTIC RESPONSE UNEXPECTED WITH DRUG SUBSTITUTION [None]
